FAERS Safety Report 9016898 (Version 1)
Quarter: 2013Q1

REPORT INFORMATION
  Report Type: Spontaneous
  Country: US (occurrence: US)
  Receive Date: 20130117
  Receipt Date: 20130117
  Transmission Date: 20140127
  Serious: Yes (Death)
  Sender: FDA-Public Use
  Company Number: US-UCBSA-074812

PATIENT
  Age: 86 Year
  Sex: Male

DRUGS (8)
  1. OMEPRAZOLE [Suspect]
     Route: 048
  2. VERAPAMIL [Suspect]
     Route: 048
  3. PRAZOSIN [Suspect]
     Route: 048
  4. METFORMIN [Suspect]
     Route: 048
  5. METOPROLOL [Suspect]
     Route: 048
  6. GLYBURIDE [Suspect]
     Route: 048
  7. FUROSEMIDE [Suspect]
     Route: 048
  8. POTASSIUM CHLORIDE [Suspect]
     Route: 048

REACTIONS (1)
  - Drug administration error [Fatal]
